FAERS Safety Report 10973092 (Version 1)
Quarter: 2015Q2

REPORT INFORMATION
  Report Type: Spontaneous
  Country: TR (occurrence: TR)
  Receive Date: 20150401
  Receipt Date: 20150401
  Transmission Date: 20150821
  Serious: Yes (Life-Threatening)
  Sender: FDA-Public Use
  Company Number: PHHY2015TR034984

PATIENT
  Sex: Female

DRUGS (1)
  1. PACLITAXEL. [Suspect]
     Active Substance: PACLITAXEL
     Indication: PRODUCT USED FOR UNKNOWN INDICATION
     Dosage: 250 MG, UNK
     Route: 042
     Dates: start: 20150311, end: 20150311

REACTIONS (6)
  - Hypotension [Recovering/Resolving]
  - Cold sweat [Recovering/Resolving]
  - Muscle twitching [Recovering/Resolving]
  - Gastrointestinal pain [Recovering/Resolving]
  - Dyspnoea [Recovering/Resolving]
  - Rash [Recovering/Resolving]

NARRATIVE: CASE EVENT DATE: 20150311
